FAERS Safety Report 9775286 (Version 1)
Quarter: 2013Q4

REPORT INFORMATION
  Report Type: Spontaneous
  Country: US (occurrence: None)
  Receive Date: 20131219
  Receipt Date: 20131219
  Transmission Date: 20140711
  Serious: No
  Sender: FDA-Public Use
  Company Number: None

PATIENT
  Age: 61 Year
  Sex: Male
  Weight: 99.79 kg

DRUGS (6)
  1. SIMVASTATIN [Suspect]
     Indication: BLOOD CHOLESTEROL INCREASED
     Dosage: 30 PILLS, ONE A DAY
     Route: 048
  2. NORCO [Concomitant]
  3. ATENOLOL [Concomitant]
  4. PEPTO BISMOL [Concomitant]
  5. EYE WASH [Concomitant]
  6. ANTACIDS [Concomitant]

REACTIONS (6)
  - Flushing [None]
  - Feeling of body temperature change [None]
  - Fatigue [None]
  - Nausea [None]
  - Toothache [None]
  - Neuralgia [None]
